FAERS Safety Report 15348423 (Version 1)
Quarter: 2018Q3

REPORT INFORMATION
  Report Type: Spontaneous
  Country: US (occurrence: US)
  Receive Date: 20180829
  Receipt Date: 20180829
  Transmission Date: 20181010
  Serious: No
  Sender: FDA-Public Use
  Company Number: None

PATIENT
  Sex: Female

DRUGS (1)
  1. DULCOLAX PINK [Suspect]
     Active Substance: BISACODYL
     Indication: CONSTIPATION

REACTIONS (2)
  - Product barcode issue [None]
  - Drug dispensing error [None]

NARRATIVE: CASE EVENT DATE: 20180828
